FAERS Safety Report 9032507 (Version 1)
Quarter: 2013Q1

REPORT INFORMATION
  Report Type: Spontaneous
  Country: BR (occurrence: BR)
  Receive Date: 20130125
  Receipt Date: 20130125
  Transmission Date: 20140127
  Serious: Yes (Other)
  Sender: FDA-Public Use
  Company Number: BR-BRISTOL-MYERS SQUIBB COMPANY-17313024

PATIENT
  Age: 79 Year
  Sex: Female

DRUGS (3)
  1. APROVEL TABS 300 MG [Suspect]
     Indication: HYPERTENSION
     Route: 048
     Dates: start: 2010
  2. JANUVIA [Concomitant]
     Indication: DIABETES MELLITUS
  3. CLOPIDOGREL BISULFATE [Concomitant]
     Indication: COAGULOPATHY

REACTIONS (2)
  - Breast cancer [Recovered/Resolved]
  - Cataract [Not Recovered/Not Resolved]
